FAERS Safety Report 16242572 (Version 1)
Quarter: 2019Q2

REPORT INFORMATION
  Report Type: Spontaneous
  Country: US (occurrence: US)
  Receive Date: 20190321
  Receipt Date: 20190321
  Transmission Date: 20190711
  Serious: Yes (Hospitalization)
  Sender: FDA-Public Use
  Company Number: None

PATIENT
  Age: 71 Year
  Sex: Female
  Weight: 96.2 kg

DRUGS (2)
  1. TAXOL [Suspect]
     Active Substance: PACLITAXEL
     Dates: end: 20190306
  2. CARBOPLATIN. [Suspect]
     Active Substance: CARBOPLATIN
     Dates: end: 20190306

REACTIONS (9)
  - Nausea [None]
  - Pleural effusion [None]
  - Vomiting [None]
  - Inadequate analgesia [None]
  - Tachycardia [None]
  - Hypovolaemia [None]
  - Bacteriuria [None]
  - Atelectasis [None]
  - Abdominal pain [None]

NARRATIVE: CASE EVENT DATE: 20190311
